FAERS Safety Report 16701988 (Version 1)
Quarter: 2019Q3

REPORT INFORMATION
  Report Type: Spontaneous
  Country: US (occurrence: US)
  Receive Date: 20190628
  Receipt Date: 20190628
  Transmission Date: 20191004
  Serious: Yes (Other)
  Sender: FDA-Public Use
  Company Number: None

PATIENT
  Age: 24 Year
  Sex: Female
  Weight: 47.63 kg

DRUGS (1)
  1. PROPOFOL 10MG/ML [Suspect]
     Active Substance: PROPOFOL
     Indication: ANAESTHESIA
     Route: 042
     Dates: start: 20190614

REACTIONS (3)
  - Irritability [None]
  - Agitation [None]
  - Paranoia [None]

NARRATIVE: CASE EVENT DATE: 20190614
